FAERS Safety Report 8784648 (Version 1)
Quarter: 2012Q4

REPORT INFORMATION
  Report Type: Spontaneous
  Country: US (occurrence: None)
  Receive Date: 20120907
  Receipt Date: 20120907
  Transmission Date: 20130627
  Serious: Yes (Hospitalization)
  Sender: FDA-Public Use
  Company Number: None

PATIENT
  Age: 69 Year
  Sex: Male
  Weight: 88.3 kg

DRUGS (1)
  1. MORPHINE [Suspect]
     Dates: start: 20120516

REACTIONS (4)
  - Fall [None]
  - Somnolence [None]
  - Mental status changes [None]
  - Renal failure acute [None]
